FAERS Safety Report 4280575-6 (Version None)
Quarter: 2004Q1

REPORT INFORMATION
  Report Type: 
  Country: None (occurrence: None)
  Receive Date: 20040127
  Receipt Date: 20040120
  Transmission Date: 20041129
  Serious: Yes (Death, Other)
  Sender: FDA-Public Use
  Company Number: 2004195144IT

PATIENT
  Age: 78 Year
  Sex: Female

DRUGS (1)
  1. HEPARIN SODIUM [Suspect]
     Indication: ACUTE MYOCARDIAL INFARCTION
     Dosage: IV
     Route: 042

REACTIONS (8)
  - BRONCHOPNEUMONIA [None]
  - CEREBRAL INFARCTION [None]
  - PERIPHERAL EMBOLISM [None]
  - QUADRIPARESIS [None]
  - SPLEEN DISORDER [None]
  - SUBARACHNOID HAEMORRHAGE [None]
  - VASCULITIS NECROTISING [None]
  - WEGENER'S GRANULOMATOSIS [None]
